FAERS Safety Report 14918742 (Version 1)
Quarter: 2018Q2

REPORT INFORMATION
  Report Type: Spontaneous
  Country: US (occurrence: US)
  Receive Date: 20180521
  Receipt Date: 20180521
  Transmission Date: 20180711
  Serious: No
  Sender: FDA-Public Use
  Company Number: US-PFIZER INC-2018205060

PATIENT
  Age: 59 Year
  Sex: Male

DRUGS (3)
  1. GABAPENTIN. [Suspect]
     Active Substance: GABAPENTIN
     Dosage: IT WAS INCREASED BY HIS DOCTOR TO FIVE TIMES A DAY
  2. OXYCONTIN [Suspect]
     Active Substance: OXYCODONE HYDROCHLORIDE
  3. GABAPENTIN. [Suspect]
     Active Substance: GABAPENTIN
     Indication: NEURALGIA
     Dosage: 1800 MG, 3X/DAY(1800MG YELLOW CAPSULES THREE TIMES A DAY)
     Route: 048
     Dates: start: 2016

REACTIONS (5)
  - Somnolence [Unknown]
  - Prescribed overdose [Unknown]
  - Drug ineffective for unapproved indication [Unknown]
  - Feeling abnormal [Unknown]
  - Speech disorder [Unknown]
